FAERS Safety Report 4560794-1 (Version None)
Quarter: 2005Q1

REPORT INFORMATION
  Report Type: 
  Country: None (occurrence: None)
  Receive Date: 20050126
  Receipt Date: 20050120
  Transmission Date: 20050727
  Serious: Yes (Death)
  Sender: FDA-Public Use
  Company Number: JP-SOLVAY-00305000185

PATIENT
  Age: 24 Year
  Sex: Male
  Weight: 77.9 kg

DRUGS (8)
  1. FLUVOXAMINE MALEATE [Suspect]
     Indication: ILL-DEFINED DISORDER
     Dosage: DAILY DOSE: 250 MILLIGRAM(S), FREQUENCY: ONCE
     Route: 048
  2. METOCLOPRAMIDE [Suspect]
     Indication: ILL-DEFINED DISORDER
     Dosage: DAILY DOSE: 50 MILLIGRAM(S), FREQUENCY: ONCE
     Route: 048
  3. PROPERICIAZINE [Suspect]
     Indication: ILL-DEFINED DISORDER
     Dosage: DAILY DOSE: 200 MILLIGRAM(S), FREQUENCY: ONCE
     Route: 048
  4. PROMETHAZINE HCL [Suspect]
     Indication: ILL-DEFINED DISORDER
     Dosage: DAILY DOSE: 1125 MILLIGRAM(S), FREQUENCY: ONCE
     Route: 048
  5. LEVOMEPROMAZINE MALEATE [Suspect]
     Indication: ILL-DEFINED DISORDER
     Dosage: DAILY DOSE: 50 MILLIGRAM(S), FREQUENCY: ONCE
     Route: 048
  6. LEVOMEPROMAZINE MALEATE [Suspect]
     Dosage: DAILY DOSE: 350 MILLIGRAM(S), FREQUENCY: ONCE
     Route: 048
  7. SULPIRIDE [Suspect]
     Indication: ILL-DEFINED DISORDER
     Dosage: DAILY DOSE: 1450 MILLIGRAM(S), FREQUENCY: ONCE
     Route: 048
  8. BROTIZORAM [Suspect]
     Indication: ILL-DEFINED DISORDER
     Dosage: DAILY DOSE: 12.5 MILLIGRAM(S), FREQUENCY: ONCE
     Route: 048

REACTIONS (9)
  - AGGRESSION [None]
  - DRUG TOXICITY [None]
  - LOSS OF CONSCIOUSNESS [None]
  - MULTIPLE DRUG OVERDOSE [None]
  - NEUROLEPTIC MALIGNANT SYNDROME [None]
  - PULMONARY CONGESTION [None]
  - PULMONARY OEDEMA [None]
  - RESPIRATORY ARREST [None]
  - SNORING [None]
